FAERS Safety Report 9638573 (Version 3)
Quarter: 2013Q4

REPORT INFORMATION
  Report Type: Spontaneous
  Country: JP (occurrence: JP)
  Receive Date: 20131022
  Receipt Date: 20131128
  Transmission Date: 20140711
  Serious: Yes (Hospitalization)
  Sender: FDA-Public Use
  Company Number: JP-BRISTOL-MYERS SQUIBB COMPANY-19590843

PATIENT
  Age: 83 Year
  Sex: Female
  Weight: 38 kg

DRUGS (7)
  1. BYETTA PEN DISPOSABLE [Suspect]
     Indication: DIABETES MELLITUS
     Dosage: 5 MCG?BYETTA SUBCUTANEOUS INJECTION 5 MICRO GRAM PEN 300
     Route: 058
     Dates: start: 20120524, end: 20130219
  2. CONIEL [Concomitant]
     Indication: CEREBRAL INFARCTION
     Route: 048
     Dates: start: 20130603, end: 20131108
  3. OLMETEC [Concomitant]
     Indication: HYPERTENSION
     Route: 048
     Dates: start: 20100603
  4. AMARYL [Concomitant]
     Indication: DIABETES MELLITUS
     Route: 048
     Dates: start: 20120524, end: 20130219
  5. LIVALO [Concomitant]
     Indication: DYSLIPIDAEMIA
     Route: 048
     Dates: start: 20060710
  6. METHYCOBAL [Concomitant]
     Indication: DIABETIC NEUROPATHY
     Route: 048
     Dates: start: 20110228
  7. MEDET [Concomitant]
     Indication: DIABETES MELLITUS
     Route: 048
     Dates: start: 20110325, end: 20130219

REACTIONS (7)
  - Pancreatic enlargement [Recovered/Resolved]
  - Hyperglycaemia [Recovered/Resolved]
  - Carcinoembryonic antigen increased [Recovered/Resolved]
  - Carbohydrate antigen 19-9 increased [Recovered/Resolved]
  - Vomiting [Unknown]
  - Decreased appetite [Unknown]
  - Weight decreased [Unknown]
